FAERS Safety Report 25765068 (Version 1)
Quarter: 2025Q3

REPORT INFORMATION
  Report Type: Spontaneous
  Country: EU (occurrence: EU)
  Receive Date: 20250905
  Receipt Date: 20250905
  Transmission Date: 20251021
  Serious: Yes (Hospitalization, Other)
  Sender: SANOFI AVENTIS
  Company Number: EU-DialogSolutions-SAAVPROD-PI817603-C1

PATIENT
  Age: 73 Year
  Sex: Male

DRUGS (3)
  1. LEFLUNOMIDE [Suspect]
     Active Substance: LEFLUNOMIDE
     Indication: Renal transplant
  2. LEFLUNOMIDE [Suspect]
     Active Substance: LEFLUNOMIDE
  3. TACROLIMUS [Suspect]
     Active Substance: TACROLIMUS
     Indication: Renal transplant

REACTIONS (11)
  - Renal cell carcinoma [Recovered/Resolved]
  - Retroperitonitis [Recovered/Resolved]
  - Asthenia [Recovered/Resolved]
  - Anaemia [Recovered/Resolved]
  - Renal mass [Recovered/Resolved]
  - Renal necrosis [Recovered/Resolved]
  - Acute kidney injury [Recovered/Resolved]
  - Metastases to bone [Recovered/Resolved]
  - Metastases to retroperitoneum [Recovered/Resolved]
  - Metastases to lymph nodes [Recovered/Resolved]
  - BK virus infection [Recovered/Resolved]
